FAERS Safety Report 14896815 (Version 3)
Quarter: 2018Q4

REPORT INFORMATION
  Report Type: Spontaneous
  Country: FR (occurrence: FR)
  Receive Date: 20180515
  Receipt Date: 20181113
  Transmission Date: 20190204
  Serious: Yes (Life-Threatening, Other)
  Sender: FDA-Public Use
  Company Number: FR-GILEAD-2018-0337524

PATIENT
  Age: 50 Year
  Sex: Male

DRUGS (21)
  1. SOVALDI [Suspect]
     Active Substance: SOFOSBUVIR
     Indication: HEPATITIS C
     Dosage: UNK
     Route: 048
     Dates: start: 2013
  2. DAKLINZA [Suspect]
     Active Substance: DACLATASVIR
     Route: 048
  3. MYFORTIC [Suspect]
     Active Substance: MYCOPHENOLATE SODIUM
     Indication: LIVER TRANSPLANT
     Dosage: UNK
     Route: 048
     Dates: start: 201311, end: 201802
  4. DAKLINZA [Suspect]
     Active Substance: DACLATASVIR
     Route: 048
  5. DAKLINZA [Suspect]
     Active Substance: DACLATASVIR
     Route: 048
  6. CERTICAN [Suspect]
     Active Substance: EVEROLIMUS
     Indication: LIVER TRANSPLANT
     Dosage: UNK
     Route: 048
     Dates: start: 201311
  7. DAKLINZA [Suspect]
     Active Substance: DACLATASVIR
     Route: 048
  8. TELAPREVIR [Suspect]
     Active Substance: TELAPREVIR
     Route: 048
  9. PROGRAF [Suspect]
     Active Substance: TACROLIMUS\TACROLIMUS ANHYDROUS
     Indication: LIVER TRANSPLANT
     Dosage: UNK
     Route: 048
     Dates: start: 201311
  10. DAKLINZA [Suspect]
     Active Substance: DACLATASVIR
     Indication: HEPATITIS C
     Route: 048
  11. TELAPREVIR [Suspect]
     Active Substance: TELAPREVIR
     Route: 048
  12. TELAPREVIR [Suspect]
     Active Substance: TELAPREVIR
     Route: 048
  13. DAKLINZA [Suspect]
     Active Substance: DACLATASVIR
     Route: 048
  14. TELAPREVIR [Suspect]
     Active Substance: TELAPREVIR
     Route: 048
  15. TELAPREVIR [Suspect]
     Active Substance: TELAPREVIR
     Route: 048
  16. TELAPREVIR [Suspect]
     Active Substance: TELAPREVIR
     Route: 048
  17. RIBAVIRIN. [Suspect]
     Active Substance: RIBAVIRIN
     Indication: HEPATITIS C
     Route: 048
     Dates: start: 2009
  18. DAKLINZA [Suspect]
     Active Substance: DACLATASVIR
     Route: 048
  19. TELAPREVIR [Suspect]
     Active Substance: TELAPREVIR
     Indication: HEPATITIS C
     Dosage: UNK
     Route: 048
  20. DAKLINZA [Suspect]
     Active Substance: DACLATASVIR
     Route: 048
  21. TELAPREVIR [Suspect]
     Active Substance: TELAPREVIR
     Route: 048

REACTIONS (1)
  - Acute leukaemia [Not Recovered/Not Resolved]

NARRATIVE: CASE EVENT DATE: 201711
